FAERS Safety Report 23442728 (Version 1)
Quarter: 2024Q1

REPORT INFORMATION
  Report Type: Report from Study
  Country: US (occurrence: US)
  Receive Date: 20240125
  Receipt Date: 20240125
  Transmission Date: 20240409
  Serious: No
  Sender: FDA-Public Use
  Company Number: US-AstraZeneca-CH-00550285A

PATIENT
  Sex: Male

DRUGS (1)
  1. ULTOMIRIS [Suspect]
     Active Substance: RAVULIZUMAB-CWVZ
     Indication: Myasthenia gravis
     Dosage: UNK
     Route: 041

REACTIONS (6)
  - Eyelid ptosis [Unknown]
  - Diplopia [Not Recovered/Not Resolved]
  - Muscular weakness [Unknown]
  - Parosmia [Unknown]
  - Tinnitus [Unknown]
  - Dysstasia [Unknown]
